FAERS Safety Report 12855777 (Version 3)
Quarter: 2017Q2

REPORT INFORMATION
  Report Type: Report from Study
  Country: DE (occurrence: DE)
  Receive Date: 20161018
  Receipt Date: 20170526
  Transmission Date: 20170830
  Serious: Yes (Hospitalization)
  Sender: FDA-Public Use
  Company Number: DE-ROCHE-1842857

PATIENT
  Sex: Male

DRUGS (6)
  1. SOMATROPIN [Suspect]
     Active Substance: SOMATROPIN
     Indication: GROWTH FAILURE
     Dosage: 10 MG / 2 ML
     Route: 058
     Dates: start: 20120507, end: 201210
  2. SOMATROPIN [Suspect]
     Active Substance: SOMATROPIN
     Route: 058
     Dates: start: 201506
  3. SOMATROPIN [Suspect]
     Active Substance: SOMATROPIN
     Route: 058
     Dates: start: 201210, end: 201303
  4. SOMATROPIN [Suspect]
     Active Substance: SOMATROPIN
     Indication: OFF LABEL USE
     Route: 058
     Dates: start: 201303, end: 201401
  5. SOMATROPIN [Suspect]
     Active Substance: SOMATROPIN
     Route: 058
     Dates: start: 201401
  6. MEDIKINET [Concomitant]
     Active Substance: METHYLPHENIDATE
     Indication: ENDOCRINE DISORDER

REACTIONS (2)
  - Knee deformity [Recovered/Resolved]
  - Off label use [Unknown]

NARRATIVE: CASE EVENT DATE: 201507
